APPROVED DRUG PRODUCT: TRUQAP
Active Ingredient: CAPIVASERTIB
Strength: 160MG
Dosage Form/Route: TABLET;ORAL
Application: N218197 | Product #001
Applicant: ASTRAZENECA PHARMACEUTICALS LP
Approved: Nov 16, 2023 | RLD: Yes | RS: No | Type: RX

PATENTS:
Patent 11760760 | Expires: Oct 10, 2028
Patent 10654855 | Expires: Oct 10, 2028
Patent 10039766 | Expires: Apr 16, 2033
Patent 8101623 | Expires: Mar 10, 2030
Patent 12252495 | Expires: Oct 10, 2028
Patent 10059714 | Expires: Oct 10, 2028
Patent 9487525 | Expires: Apr 16, 2033

EXCLUSIVITY:
Code: NCE | Date: Nov 16, 2028